FAERS Safety Report 25630145 (Version 2)
Quarter: 2025Q3

REPORT INFORMATION
  Report Type: Report from Study
  Country: BR (occurrence: BR)
  Receive Date: 20250801
  Receipt Date: 20250801
  Transmission Date: 20251020
  Serious: Yes (Other)
  Sender: JOHNSON AND JOHNSON
  Company Number: BR-JNJFOC-20250739410

PATIENT
  Age: 17 Year
  Sex: Female
  Weight: 47 kg

DRUGS (2)
  1. INFLIXIMAB [Suspect]
     Active Substance: INFLIXIMAB
     Indication: Colitis ulcerative
     Route: 041
  2. REMICADE [Suspect]
     Active Substance: INFLIXIMAB
     Indication: Colitis ulcerative
     Route: 041

REACTIONS (3)
  - Colitis ulcerative [Not Recovered/Not Resolved]
  - Cholangitis sclerosing [Unknown]
  - Weight increased [Unknown]

NARRATIVE: CASE EVENT DATE: 20250501
